FAERS Safety Report 5898354-2 (Version None)
Quarter: 2008Q3

REPORT INFORMATION
  Report Type: 
  Country: None (occurrence: None)
  Receive Date: 20080925
  Receipt Date: 20070927
  Transmission Date: 20090109
  Serious: No
  Sender: FDA-Public Use
  Company Number: A0684699A

PATIENT
  Age: 41 Year
  Sex: Female

DRUGS (4)
  1. WELLBUTRIN XL [Suspect]
     Indication: DEPRESSION
     Dosage: 150MG VARIABLE DOSE
     Route: 048
     Dates: start: 20030101, end: 20070925
  2. LEXAPRO [Concomitant]
  3. DIOVAN [Concomitant]
  4. PERCOCET [Concomitant]

REACTIONS (2)
  - HEADACHE [None]
  - HYPERHIDROSIS [None]
